FAERS Safety Report 18588960 (Version 2)
Quarter: 2020Q4

REPORT INFORMATION
  Report Type: Spontaneous
  Country: US (occurrence: US)
  Receive Date: 20201208
  Receipt Date: 20201211
  Transmission Date: 20210114
  Serious: No
  Sender: FDA-Public Use
  Company Number: NVSC2020US325542

PATIENT
  Sex: Female
  Weight: 53.98 kg

DRUGS (1)
  1. ZOFRAN [Suspect]
     Active Substance: ONDANSETRON HYDROCHLORIDE
     Indication: IMPAIRED GASTRIC EMPTYING
     Dosage: 0.8 MG, QD (0.8 MG ONCE DAILY UNDER TONGUE)
     Route: 065
     Dates: start: 2000

REACTIONS (2)
  - Depression [Unknown]
  - Off label use [Unknown]
